FAERS Safety Report 24293319 (Version 1)
Quarter: 2024Q3

REPORT INFORMATION
  Report Type: Spontaneous
  Country: US (occurrence: None)
  Receive Date: 20240906
  Receipt Date: 20240906
  Transmission Date: 20241017
  Serious: No
  Sender: DOMPE FARMACEUTICI
  Company Number: US-FARMAPROD-202308-202312-3793

PATIENT
  Age: 37 Year
  Sex: Female
  Weight: 51.26 kg

DRUGS (6)
  1. OXERVATE [Suspect]
     Active Substance: CENEGERMIN-BKBJ
     Indication: Neurotrophic keratopathy
     Route: 047
     Dates: start: 20231218
  2. CEQUA [Concomitant]
     Active Substance: CYCLOSPORINE
     Dosage: DROPERETTE
  3. CETIRIZINE HYDROCHLORIDE [Concomitant]
     Active Substance: CETIRIZINE HYDROCHLORIDE
  4. FLUOXETINE HYDROCHLORIDE [Concomitant]
     Active Substance: FLUOXETINE HYDROCHLORIDE
  5. MIRENA [Concomitant]
     Active Substance: LEVONORGESTREL
     Dosage: 21MCG/24H IUD (INTRAUTERINE DEVICE)
  6. PROZAC [Concomitant]
     Active Substance: FLUOXETINE HYDROCHLORIDE

REACTIONS (2)
  - Wrong technique in product usage process [Unknown]
  - Product dose omission issue [Unknown]
